FAERS Safety Report 25938004 (Version 1)
Quarter: 2025Q4

REPORT INFORMATION
  Report Type: Spontaneous
  Country: CN (occurrence: CN)
  Receive Date: 20251018
  Receipt Date: 20251018
  Transmission Date: 20260117
  Serious: Yes (Other)
  Sender: MACLEODS
  Company Number: CN-MACLEODS PHARMA-MAC2025055882

PATIENT

DRUGS (2)
  1. CLOBETASOL [Suspect]
     Active Substance: CLOBETASOL
     Indication: Psoriasis
     Dosage: WITHIN THE PAST 5 YEARS
     Route: 065
  2. ACITRETIN [Concomitant]
     Active Substance: ACITRETIN
     Indication: Product used for unknown indication
     Route: 048

REACTIONS (5)
  - Hypokalaemia [Unknown]
  - Osteoporosis [Unknown]
  - Hypothalamic pituitary adrenal axis suppression [Recovering/Resolving]
  - Drug abuse [Unknown]
  - Cushing^s syndrome [Recovering/Resolving]
